FAERS Safety Report 24600523 (Version 2)
Quarter: 2025Q3

REPORT INFORMATION
  Report Type: Report from Study
  Country: ZA (occurrence: ZA)
  Receive Date: 20241110
  Receipt Date: 20250809
  Transmission Date: 20251021
  Serious: Yes (Death, Other)
  Sender: ALEXION PHARMACEUTICALS
  Company Number: ZA-AstraZeneca-CH-00734616A

PATIENT
  Age: 78 Year
  Sex: Male

DRUGS (9)
  1. DAPAGLIFLOZIN [Suspect]
     Active Substance: DAPAGLIFLOZIN
  2. Microlax [Concomitant]
  3. ACETYLCYSTEINE [Concomitant]
     Active Substance: ACETYLCYSTEINE
  4. Adco linctopent [Concomitant]
  5. Benylin four flu [Concomitant]
  6. LASIX [Concomitant]
     Active Substance: FUROSEMIDE
  7. Spiractin [Concomitant]
  8. SIMVASTATIN [Concomitant]
     Active Substance: SIMVASTATIN
  9. POTASSIUM CHLORIDE [Concomitant]
     Active Substance: POTASSIUM CHLORIDE

REACTIONS (2)
  - Death [Fatal]
  - Cardiac failure [Unknown]
